FAERS Safety Report 8789990 (Version 2)
Quarter: 2012Q4

REPORT INFORMATION
  Report Type: 
  Country: US (occurrence: US)
  Receive Date: 20120917
  Receipt Date: 20121015
  Transmission Date: 20130627
  Serious: No
  Sender: FDA-Public Use
  Company Number: US-ASTRAZENECA-2012SE69982

PATIENT
  Age: 78 Year
  Sex: Female
  Weight: 79.8 kg

DRUGS (3)
  1. CRESTOR [Suspect]
     Route: 048
  2. CRESTOR [Suspect]
     Route: 048
  3. SYMBICORT [Concomitant]

REACTIONS (2)
  - Adverse drug reaction [Unknown]
  - Fatigue [Recovering/Resolving]
